FAERS Safety Report 6426112-9 (Version None)
Quarter: 2009Q4

REPORT INFORMATION
  Report Type: 
  Country: None (occurrence: None)
  Receive Date: 20091104
  Receipt Date: 20091029
  Transmission Date: 20100525
  Serious: Yes (Other)
  Sender: FDA-Public Use
  Company Number: AU-WYE-G04738609

PATIENT
  Age: 29 Year
  Sex: Female
  Weight: 63.6 kg

DRUGS (1)
  1. PRISTIQ [Suspect]
     Indication: MAJOR DEPRESSION
     Route: 048
     Dates: start: 20090801, end: 20090924

REACTIONS (1)
  - HALLUCINATION, AUDITORY [None]
